FAERS Safety Report 4629188-4 (Version None)
Quarter: 2005Q2

REPORT INFORMATION
  Report Type: 
  Country: None (occurrence: None)
  Receive Date: 20050404
  Receipt Date: 20050404
  Transmission Date: 20051028
  Serious: Yes (Life-Threatening, Hospitalization, Disabling, Other)
  Sender: FDA-Public Use
  Company Number: None

PATIENT
  Age: 72 Year
  Sex: Female
  Weight: 83.4619 kg

DRUGS (4)
  1. VIOXX [Suspect]
     Indication: ARTHRITIS
     Dosage: AS DIRECTED BY DOCTOR
  2. BEXTRA [Suspect]
  3. FEMINE PADS [Concomitant]
  4. SYRINGES FOR INSULIN [Concomitant]

REACTIONS (20)
  - ARTERIOGRAM ABNORMAL [None]
  - CARDIAC STRESS TEST ABNORMAL [None]
  - COMPUTERISED TOMOGRAM ABNORMAL [None]
  - CORONARY ARTERY DISEASE [None]
  - DIALYSIS [None]
  - GASTROOESOPHAGEAL REFLUX DISEASE [None]
  - GOITRE [None]
  - HYPERTENSION [None]
  - IMPAIRED HEALING [None]
  - INSULIN-REQUIRING TYPE II DIABETES MELLITUS [None]
  - ISCHAEMIA [None]
  - MYOCARDIAL INFARCTION [None]
  - NECK MASS [None]
  - PERIPHERAL VASCULAR DISORDER [None]
  - RENAL FAILURE CHRONIC [None]
  - SALIVARY GLAND NEOPLASM [None]
  - THYROID CYST [None]
  - THYROID MASS [None]
  - THYROID NEOPLASM [None]
  - VASCULAR GRAFT OCCLUSION [None]
